FAERS Safety Report 21947974 (Version 4)
Quarter: 2023Q2

REPORT INFORMATION
  Report Type: Spontaneous
  Country: US (occurrence: US)
  Receive Date: 20230203
  Receipt Date: 20230411
  Transmission Date: 20230722
  Serious: Yes (Hospitalization)
  Sender: FDA-Public Use
  Company Number: US-PFIZER INC-202300047291

PATIENT
  Age: 67 Year
  Sex: Female
  Weight: 54.422 kg

DRUGS (4)
  1. ENBREL [Suspect]
     Active Substance: ETANERCEPT
     Indication: Rheumatoid arthritis
     Dosage: UNK, WEEKLY (ONE SHOT A WEEK)
     Route: 065
     Dates: start: 1990, end: 20221130
  2. METHOTREXATE [Concomitant]
     Active Substance: METHOTREXATE
     Dosage: UNK (6 PILLS A WEEK)
     Dates: start: 1995
  3. VITAMIN D NOS [Concomitant]
     Active Substance: VITAMIN D NOS
     Dosage: UNK
  4. FOLIC ACID [Concomitant]
     Active Substance: FOLIC ACID
     Dosage: UNK (ONE PAIN PILL IN THE MORNING AND ONE PAIN PILL AT NIGHT)

REACTIONS (5)
  - Weight decreased [Recovered/Resolved]
  - Pain [Recovered/Resolved]
  - Gait inability [Not Recovered/Not Resolved]
  - Peripheral swelling [Recovered/Resolved]
  - Muscular weakness [Recovered/Resolved]
